FAERS Safety Report 6376939-7 (Version None)
Quarter: 2009Q3

REPORT INFORMATION
  Report Type: 
  Country: None (occurrence: None)
  Receive Date: 20090925
  Receipt Date: 20090914
  Transmission Date: 20100115
  Serious: Yes (Life-Threatening, Other)
  Sender: FDA-Public Use
  Company Number: JP-PFIZER INC-2009270113

PATIENT
  Age: 65 Year

DRUGS (3)
  1. ZITHROMAX [Suspect]
     Indication: UPPER RESPIRATORY TRACT INFLAMMATION
     Dosage: 500 MG, 1X/DAY
     Route: 048
     Dates: start: 20090721, end: 20090723
  2. AMARYL [Interacting]
     Indication: DIABETES MELLITUS
     Dosage: 1 MG/DAY
     Route: 048
  3. ACTOS [Concomitant]
     Route: 048

REACTIONS (2)
  - DRUG INTERACTION [None]
  - HYPOGLYCAEMIA [None]
